FAERS Safety Report 16110779 (Version 2)
Quarter: 2019Q2

REPORT INFORMATION
  Report Type: Spontaneous
  Country: ES (occurrence: ES)
  Receive Date: 20190325
  Receipt Date: 20190415
  Transmission Date: 20190711
  Serious: Yes (Other)
  Sender: FDA-Public Use
  Company Number: PHHY2019ES063726

PATIENT
  Age: 62 Year
  Sex: Female

DRUGS (3)
  1. PERTUZUMAB. [Suspect]
     Active Substance: PERTUZUMAB
     Indication: BREAST CANCER METASTATIC
     Dosage: 420 MG, Q3W
     Route: 042
     Dates: start: 20180607, end: 20180918
  2. LETROZOLE. [Suspect]
     Active Substance: LETROZOLE
     Indication: BREAST CANCER METASTATIC
     Dosage: 2.5 MG, QD
     Route: 048
     Dates: start: 20180607
  3. TRASTUZUMAB. [Suspect]
     Active Substance: TRASTUZUMAB
     Indication: BREAST CANCER METASTATIC
     Dosage: 6 MG/KG, Q3W
     Route: 042
     Dates: start: 20180607

REACTIONS (2)
  - Ejection fraction decreased [Recovered/Resolved]
  - Cardiotoxicity [Unknown]

NARRATIVE: CASE EVENT DATE: 20180917
